FAERS Safety Report 20350407 (Version 2)
Quarter: 2022Q2

REPORT INFORMATION
  Report Type: Spontaneous
  Country: JP (occurrence: JP)
  Receive Date: 20220119
  Receipt Date: 20220523
  Transmission Date: 20220720
  Serious: Yes (Other)
  Sender: FDA-Public Use
  Company Number: JP-PFIZER INC-202200050378

PATIENT
  Age: 35 Year
  Sex: Male

DRUGS (2)
  1. METHYLPREDNISOLONE [Suspect]
     Active Substance: METHYLPREDNISOLONE
     Indication: Altered state of consciousness
     Dosage: 1 G, DAILY
  2. METHOTREXATE [Suspect]
     Active Substance: METHOTREXATE
     Indication: Altered state of consciousness
     Dosage: 10 MG, DAILY

REACTIONS (3)
  - Pneumonia aspiration [Unknown]
  - Drug ineffective for unapproved indication [Unknown]
  - Off label use [Unknown]
